FAERS Safety Report 12354045 (Version 1)
Quarter: 2016Q2

REPORT INFORMATION
  Report Type: Spontaneous
  Country: US (occurrence: US)
  Receive Date: 20160511
  Receipt Date: 20160511
  Transmission Date: 20160815
  Serious: Yes (Hospitalization)
  Sender: FDA-Public Use
  Company Number: PHEH2016US010522

PATIENT
  Age: 70 Year
  Sex: Male

DRUGS (1)
  1. FARYDAK [Suspect]
     Active Substance: PANOBINOSTAT
     Indication: PLASMA CELL MYELOMA
     Dosage: 15 MG, QW3 (DAYS 1, 3, 5, 8, 10, 12)
     Route: 048
     Dates: start: 20160411

REACTIONS (6)
  - Staring [Unknown]
  - Seizure [Unknown]
  - Fall [Unknown]
  - Cold sweat [Unknown]
  - Nasopharyngitis [Unknown]
  - Hypotension [Unknown]

NARRATIVE: CASE EVENT DATE: 20160416
